FAERS Safety Report 10508676 (Version 2)
Quarter: 2014Q4

REPORT INFORMATION
  Report Type: Spontaneous
  Country: DE (occurrence: DE)
  Receive Date: 20141009
  Receipt Date: 20141111
  Transmission Date: 20150528
  Serious: Yes (Hospitalization, Other)
  Sender: FDA-Public Use
  Company Number: DE-BRISTOL-MYERS SQUIBB COMPANY-21466974

PATIENT
  Age: 40 Year
  Sex: Female

DRUGS (5)
  1. ABILIFY [Suspect]
     Active Substance: ARIPIPRAZOLE
     Indication: SCHIZOPHRENIA
  2. LORAZEPAM. [Concomitant]
     Active Substance: LORAZEPAM
  3. QUETIAPINE [Concomitant]
     Active Substance: QUETIAPINE
  4. OLANZAPINE. [Concomitant]
     Active Substance: OLANZAPINE
  5. ESCITALOPRAM [Concomitant]
     Active Substance: ESCITALOPRAM OXALATE

REACTIONS (3)
  - Depressive symptom [Unknown]
  - Treatment noncompliance [Unknown]
  - Psychotic disorder [Unknown]
